FAERS Safety Report 17709663 (Version 2)
Quarter: 2020Q2

REPORT INFORMATION
  Report Type: Spontaneous
  Country: US (occurrence: US)
  Receive Date: 20200427
  Receipt Date: 20200428
  Transmission Date: 20200714
  Serious: No
  Sender: FDA-Public Use
  Company Number: US-009507513-2004USA006658

PATIENT
  Sex: Male

DRUGS (2)
  1. ASMANEX [Suspect]
     Active Substance: MOMETASONE FUROATE
     Dosage: UNK
     Dates: start: 20200418
  2. ASMANEX [Suspect]
     Active Substance: MOMETASONE FUROATE
     Dosage: UNK
     Dates: start: 20200418

REACTIONS (2)
  - Product quality issue [Unknown]
  - Poor quality device used [Unknown]

NARRATIVE: CASE EVENT DATE: 20200418
